FAERS Safety Report 16741732 (Version 4)
Quarter: 2020Q2

REPORT INFORMATION
  Report Type: Report from Study
  Country: US (occurrence: US)
  Receive Date: 20190826
  Receipt Date: 20200406
  Transmission Date: 20200713
  Serious: No
  Sender: FDA-Public Use
  Company Number: US-ALLERGAN-1934488US

PATIENT
  Age: 49 Year
  Sex: Male
  Weight: 97.3 kg

DRUGS (5)
  1. PLACEBO [Suspect]
     Active Substance: UNSPECIFIED INGREDIENT
     Indication: BIPOLAR I DISORDER
     Dosage: UNK
     Dates: start: 20190718
  2. LISINOPRIL. [Concomitant]
     Active Substance: LISINOPRIL
     Indication: HYPERTENSION
     Dosage: 20 MG, QD
     Route: 048
     Dates: start: 2017
  3. ASPIRIN. [Concomitant]
     Active Substance: ASPIRIN
     Indication: CARDIOVASCULAR EVENT PROPHYLAXIS
     Dosage: 81 MG, QD
     Route: 048
     Dates: start: 2017
  4. BLINDED CARIPRAZINE HCL 1.5MG CAP (011327X) [Suspect]
     Active Substance: CARIPRAZINE HYDROCHLORIDE
     Indication: BIPOLAR I DISORDER
     Dosage: UNK
     Dates: start: 20190718
  5. BLINDED CARIPRAZINE HCL 3MG CAP (TBD) [Suspect]
     Active Substance: CARIPRAZINE HYDROCHLORIDE
     Indication: BIPOLAR I DISORDER
     Dosage: UNK
     Dates: start: 20190718

REACTIONS (2)
  - Visual acuity tests abnormal [Not Recovered/Not Resolved]
  - Cataract nuclear [Not Recovered/Not Resolved]

NARRATIVE: CASE EVENT DATE: 20190814
